FAERS Safety Report 18864610 (Version 3)
Quarter: 2021Q1

REPORT INFORMATION
  Report Type: Report from Study
  Country: PE (occurrence: PE)
  Receive Date: 20210208
  Receipt Date: 20210225
  Transmission Date: 20210420
  Serious: Yes (Other)
  Sender: FDA-Public Use
  Company Number: NVSC2021PE024143

PATIENT
  Age: 66 Year
  Sex: Female

DRUGS (1)
  1. REVOLADE [Suspect]
     Active Substance: ELTROMBOPAG OLAMINE
     Indication: IMMUNE THROMBOCYTOPENIA
     Dosage: 50 MG, QD
     Route: 048
     Dates: start: 20210104, end: 20210127

REACTIONS (12)
  - Mouth haemorrhage [Unknown]
  - Pain in extremity [Unknown]
  - Dysgeusia [Unknown]
  - Fatigue [Unknown]
  - Contusion [Unknown]
  - Rectal haemorrhage [Unknown]
  - Platelet count decreased [Unknown]
  - Haemorrhage [Unknown]
  - Gait inability [Unknown]
  - Stress [Unknown]
  - Tonsillar disorder [Not Recovered/Not Resolved]
  - Feeling of despair [Recovered/Resolved]

NARRATIVE: CASE EVENT DATE: 202101
